FAERS Safety Report 7436106-2 (Version None)
Quarter: 2011Q2

REPORT INFORMATION
  Report Type: 
  Country: None (occurrence: None)
  Receive Date: 20110425
  Receipt Date: 20110414
  Transmission Date: 20111010
  Serious: Yes (Life-Threatening, Hospitalization, Other)
  Sender: FDA-Public Use
  Company Number: IE-MEDIMMUNE-MEDI-0013125

PATIENT
  Weight: 8.92 kg

DRUGS (2)
  1. SYNAGIS [Suspect]
  2. MOVIPREP [Concomitant]
     Indication: CONSTIPATION
     Route: 048

REACTIONS (5)
  - PNEUMONIA [None]
  - COUGH [None]
  - APNOEA [None]
  - BRONCHIOLITIS [None]
  - SNEEZING [None]
